FAERS Safety Report 6555264-5 (Version None)
Quarter: 2010Q1

REPORT INFORMATION
  Report Type: 
  Country: None (occurrence: None)
  Receive Date: 20100128
  Receipt Date: 20090205
  Transmission Date: 20100710
  Serious: No
  Sender: FDA-Public Use
  Company Number: A0768000A

PATIENT
  Sex: Male

DRUGS (3)
  1. WELLBUTRIN [Suspect]
     Indication: DRUG USE FOR UNKNOWN INDICATION
     Route: 048
  2. ABILIFY [Suspect]
     Indication: DRUG USE FOR UNKNOWN INDICATION
     Route: 065
  3. BLOOD PRESSURE MEDICINES [Concomitant]

REACTIONS (4)
  - BINGE EATING [None]
  - ERECTILE DYSFUNCTION [None]
  - FEELING ABNORMAL [None]
  - HYPERTENSION [None]
